FAERS Safety Report 10184930 (Version 1)
Quarter: 2014Q2

REPORT INFORMATION
  Report Type: Spontaneous
  Country: CA (occurrence: None)
  Receive Date: 20140520
  Receipt Date: 20140520
  Transmission Date: 20141212
  Serious: No
  Sender: FDA-Public Use
  Company Number: None

PATIENT
  Age: 58 Year
  Sex: Female

DRUGS (13)
  1. AZILECT [Suspect]
     Indication: PARKINSON^S DISEASE
     Route: 048
     Dates: start: 20131017, end: 20140110
  2. SINEMET [Concomitant]
  3. ATIVAN [Concomitant]
  4. VENLAFAXINE XR [Concomitant]
  5. ENTACAPNE [Concomitant]
  6. SYNTHROID [Concomitant]
  7. CYTOMEA [Concomitant]
  8. ZOPICONE [Concomitant]
  9. LAXATIVE [Concomitant]
  10. FLO-VENT [Concomitant]
  11. SALBUTIMAL [Concomitant]
  12. SENNA LAX [Concomitant]
  13. DOMPERIDONE [Concomitant]

REACTIONS (20)
  - Vomiting [None]
  - Dizziness [None]
  - Asthenia [None]
  - Food aversion [None]
  - Weight decreased [None]
  - Hypotension [None]
  - Amnesia [None]
  - Gait disturbance [None]
  - Gait disturbance [None]
  - Burning sensation [None]
  - Fatigue [None]
  - Dysgraphia [None]
  - Arthralgia [None]
  - Cardiac disorder [None]
  - Insomnia [None]
  - Impaired driving ability [None]
  - Road traffic accident [None]
  - Malaise [None]
  - Fear of falling [None]
  - Inappropriate schedule of drug administration [None]
